FAERS Safety Report 7029971-4 (Version None)
Quarter: 2010Q4

REPORT INFORMATION
  Report Type: 
  Country: None (occurrence: None)
  Receive Date: 20101006
  Receipt Date: 20100921
  Transmission Date: 20110411
  Serious: Yes (Hospitalization)
  Sender: FDA-Public Use
  Company Number: IE-JNJFOC-20101000425

PATIENT
  Age: 40 Year
  Sex: Female

DRUGS (2)
  1. TRAMADOL HCL [Suspect]
     Indication: PRODUCT USED FOR UNKNOWN INDICATION
     Dosage: STARTED ON AN UNSPECIFIED DATE, SEVERAL YEARS BEFORE THIS REPORT
     Route: 065
  2. MAO INHIBITORS [Interacting]
     Indication: PRODUCT USED FOR UNKNOWN INDICATION
     Dosage: STARTED ON AN UNSPECIFIED DATE, SEVERAL YEARS BEFORE THIS REPORT
     Route: 048

REACTIONS (3)
  - ABNORMAL BEHAVIOUR [None]
  - AGITATION [None]
  - DRUG INTERACTION [None]
